FAERS Safety Report 6077261-9 (Version None)
Quarter: 2009Q1

REPORT INFORMATION
  Report Type: 
  Country: None (occurrence: None)
  Receive Date: 20090213
  Receipt Date: 20090206
  Transmission Date: 20090719
  Serious: Yes (Death)
  Sender: FDA-Public Use
  Company Number: A0750309A

PATIENT
  Age: 55 Year
  Sex: Male
  Weight: 131.8 kg

DRUGS (11)
  1. AVANDIA [Suspect]
     Dosage: 8MG PER DAY
     Route: 065
     Dates: start: 20050111, end: 20060724
  2. NORMODYNE [Concomitant]
  3. NORVASC [Concomitant]
  4. VYTORIN [Concomitant]
  5. COZAAR [Concomitant]
  6. HUMULIN [Concomitant]
  7. METOLAZONE [Concomitant]
  8. ALLOPURINOL [Concomitant]
  9. LORATADINE [Concomitant]
  10. KDUR [Concomitant]
  11. ASPIRIN [Concomitant]

REACTIONS (5)
  - CARDIAC ARREST [None]
  - CARDIAC DISORDER [None]
  - HYPERLIPIDAEMIA [None]
  - MYOCARDIAL INFARCTION [None]
  - OEDEMA [None]
